FAERS Safety Report 4331843-0 (Version None)
Quarter: 2004Q1

REPORT INFORMATION
  Report Type: 
  Country: None (occurrence: None)
  Receive Date: 20040329
  Receipt Date: 20040315
  Transmission Date: 20041129
  Serious: Yes (Death)
  Sender: FDA-Public Use
  Company Number: RENA-10947

PATIENT
  Age: 58 Year
  Sex: Male

DRUGS (5)
  1. BEZAFIBRATE [Suspect]
     Indication: HYPERCHOLESTEROLAEMIA
     Dosage: UNK
     Route: 065
     Dates: start: 20030701, end: 20030701
  2. RENAGEL [Suspect]
     Indication: HYPERPHOSPHATAEMIA
     Dosage: 0.8 G, TID; PO
     Route: 048
  3. EPOETIN ALFA [Suspect]
     Indication: DRUG USE FOR UNKNOWN INDICATION
     Dosage: 4000 UNITS; QWK; SC
     Route: 058
  4. ALFACALCIDOL [Concomitant]
  5. THYROXINE [Concomitant]

REACTIONS (2)
  - PULMONARY FIBROSIS [None]
  - RHABDOMYOLYSIS [None]
